FAERS Safety Report 6621578-3 (Version None)
Quarter: 2010Q1

REPORT INFORMATION
  Report Type: 
  Country: None (occurrence: None)
  Receive Date: 20100223
  Receipt Date: 20100114
  Transmission Date: 20100710
  Serious: Yes (Other)
  Sender: FDA-Public Use
  Company Number: 004514

PATIENT
  Sex: Male

DRUGS (1)
  1. CIMZIA [Suspect]
     Dosage: (400 MG Q 2WEEKS SUBCUTANEOUS)
     Route: 058

REACTIONS (1)
  - ARRHYTHMIA [None]
